FAERS Safety Report 10027424 (Version 1)
Quarter: 2014Q1

REPORT INFORMATION
  Report Type: Spontaneous
  Country: DK (occurrence: DK)
  Receive Date: 20140321
  Receipt Date: 20140321
  Transmission Date: 20141002
  Serious: Yes (Hospitalization)
  Sender: FDA-Public Use
  Company Number: DK-BAYER-2014-038063

PATIENT
  Age: 60 Year
  Sex: Male

DRUGS (4)
  1. AVELOX [Suspect]
     Indication: PNEUMONIA
     Dates: start: 20100201
  2. AVELOX [Suspect]
     Indication: PNEUMONIA
     Dosage: UNK
  3. DICLOCIL [Suspect]
     Indication: INFECTION PROPHYLAXIS
     Dates: start: 20100127
  4. ZINACEF [Suspect]
     Indication: PNEUMONIA
     Dates: start: 20100131

REACTIONS (22)
  - Anaphylactic reaction [Recovered/Resolved]
  - Generalised erythema [Recovered/Resolved]
  - Swollen tongue [Recovered/Resolved]
  - Pharyngeal oedema [Recovered/Resolved]
  - Swelling [Recovered/Resolved]
  - Ear swelling [Recovered/Resolved]
  - Skin exfoliation [Recovered/Resolved]
  - Tongue ulceration [Recovered/Resolved]
  - Tongue haemorrhage [Recovered/Resolved]
  - Oral pain [Recovered/Resolved]
  - Oropharyngeal pain [Recovered/Resolved]
  - Mouth ulceration [Recovered/Resolved]
  - Headache [Not Recovered/Not Resolved]
  - Arthralgia [Not Recovered/Not Resolved]
  - Fatigue [Not Recovered/Not Resolved]
  - Nail disorder [Recovered/Resolved]
  - Psoriasis [Not Recovered/Not Resolved]
  - Blister [Recovered/Resolved]
  - Post-traumatic stress disorder [Not Recovered/Not Resolved]
  - Dyspnoea [Recovered/Resolved]
  - Joint stiffness [Not Recovered/Not Resolved]
  - Depression [Unknown]
